FAERS Safety Report 6980141-5 (Version None)
Quarter: 2010Q3

REPORT INFORMATION
  Report Type: 
  Country: None (occurrence: None)
  Receive Date: 20100914
  Receipt Date: 20100825
  Transmission Date: 20110219
  Serious: Yes (Hospitalization, Other)
  Sender: FDA-Public Use
  Company Number: US-BAYER-201038462GPV

PATIENT
  Age: 29 Year
  Sex: Female
  Weight: 41 kg

DRUGS (5)
  1. ALKA-SELTZER [Suspect]
     Indication: PRODUCT USED FOR UNKNOWN INDICATION
  2. ASPIRIN [Suspect]
     Indication: RHEUMATOID ARTHRITIS
     Dosage: 2.6-3.9 G/D X YEAR
     Route: 048
  3. ASPIRIN [Suspect]
     Dosage: 2.6-3.9 G/D X YEAR
     Route: 048
  4. ROLAIDS [Suspect]
     Indication: PRODUCT USED FOR UNKNOWN INDICATION
  5. MYLANTA [Suspect]
     Indication: PRODUCT USED FOR UNKNOWN INDICATION

REACTIONS (14)
  - ABDOMINAL PAIN [None]
  - CONFUSIONAL STATE [None]
  - DECREASED APPETITE [None]
  - DEREALISATION [None]
  - DISTURBANCE IN ATTENTION [None]
  - EARLY SATIETY [None]
  - LETHARGY [None]
  - MEMORY IMPAIRMENT [None]
  - NAUSEA [None]
  - SOMNOLENCE [None]
  - TACHYCARDIA [None]
  - TACHYPNOEA [None]
  - TINNITUS [None]
  - VOMITING [None]
